FAERS Safety Report 9221776 (Version 1)
Quarter: 2013Q2

REPORT INFORMATION
  Report Type: Spontaneous
  Country: US (occurrence: None)
  Receive Date: 20130408
  Receipt Date: 20130408
  Transmission Date: 20140414
  Serious: Yes (Other)
  Sender: FDA-Public Use
  Company Number: HRA-CDB20130036

PATIENT
  Age: 32 Year
  Sex: Female

DRUGS (1)
  1. ELLA [Suspect]
     Dates: start: 20121203, end: 20121203

REACTIONS (3)
  - Abortion spontaneous [None]
  - Unintended pregnancy [None]
  - No therapeutic response [None]
